FAERS Safety Report 14861730 (Version 1)
Quarter: 2018Q2

REPORT INFORMATION
  Report Type: Spontaneous
  Country: US (occurrence: US)
  Receive Date: 20180508
  Receipt Date: 20180508
  Transmission Date: 20180711
  Serious: No
  Sender: FDA-Public Use
  Company Number: US-VIFOR (INTERNATIONAL) INC.-VIT-2016-03103

PATIENT
  Age: 84 Year
  Sex: Female

DRUGS (19)
  1. FUROSEMIDE. [Concomitant]
     Active Substance: FUROSEMIDE
  2. LEVOTHYROXINE. [Concomitant]
     Active Substance: LEVOTHYROXINE
  3. ROSUVASTATIN. [Concomitant]
     Active Substance: ROSUVASTATIN
  4. FISH OIL [Concomitant]
     Active Substance: FISH OIL
  5. OMEPRAZOLE. [Concomitant]
     Active Substance: OMEPRAZOLE
  6. COLECALCIFEROL [Concomitant]
     Active Substance: CHOLECALCIFEROL
  7. ERGOCALCIFEROL~~ASCORBIC ACID~~PYRIDOXINE HYDROCHLORIDE~~THIAMINE HYDROCHLORIDE~~RETINOL~~RIBOFLAVIN [Concomitant]
  8. FERROUS SULFATE. [Concomitant]
     Active Substance: FERROUS SULFATE
  9. LOSARTAN. [Concomitant]
     Active Substance: LOSARTAN
  10. ELIQUIS [Concomitant]
     Active Substance: APIXABAN
  11. CALCITRIOL. [Concomitant]
     Active Substance: CALCITRIOL
  12. CYANOCOBALAMIN. [Concomitant]
     Active Substance: CYANOCOBALAMIN
  13. VELTASSA [Suspect]
     Active Substance: PATIROMER
     Indication: RENAL DISORDER
     Route: 048
     Dates: start: 20160608, end: 20160610
  14. MULTAQ [Concomitant]
     Active Substance: DRONEDARONE
  15. ROPINIROLE. [Concomitant]
     Active Substance: ROPINIROLE
  16. ASPIRIN. [Concomitant]
     Active Substance: ASPIRIN
  17. PYRIDOXINE HYDROCHLORIDE. [Concomitant]
     Active Substance: PYRIDOXINE HYDROCHLORIDE
  18. MAGNESIUM [Concomitant]
     Active Substance: MAGNESIUM
  19. ASCORBIC ACID. [Concomitant]
     Active Substance: ASCORBIC ACID

REACTIONS (4)
  - Restless legs syndrome [Not Recovered/Not Resolved]
  - Flatulence [Unknown]
  - Muscle spasms [Recovered/Resolved]
  - Product use in unapproved indication [Unknown]

NARRATIVE: CASE EVENT DATE: 20160608
